FAERS Safety Report 9162713 (Version 1)
Quarter: 2013Q1

REPORT INFORMATION
  Report Type: Spontaneous
  Country: CA (occurrence: CA)
  Receive Date: 20130314
  Receipt Date: 20130314
  Transmission Date: 20140127
  Serious: Yes (Other)
  Sender: FDA-Public Use
  Company Number: CA-BAYER-2013-032037

PATIENT
  Age: 70 Year
  Sex: Female

DRUGS (1)
  1. ALEVE [Suspect]

REACTIONS (1)
  - Urinary tract infection [None]
